FAERS Safety Report 6518577-9 (Version None)
Quarter: 2009Q4

REPORT INFORMATION
  Report Type: 
  Country: None (occurrence: None)
  Receive Date: 20091228
  Receipt Date: 20091215
  Transmission Date: 20100525
  Serious: Yes (Other)
  Sender: FDA-Public Use
  Company Number: US-RB-026152-09

PATIENT
  Age: 41 Year
  Sex: Female

DRUGS (4)
  1. SUBOXONE [Suspect]
     Route: 060
     Dates: start: 20091117
  2. SUBOXONE [Suspect]
     Indication: PAIN
     Route: 060
     Dates: start: 20091117
  3. ATIVAN [Concomitant]
     Indication: ANXIETY
     Dosage: UNKNOWN DOSING DETAILS.
     Route: 065
     Dates: end: 20091214
  4. VALIUM [Concomitant]
     Indication: ANXIETY
     Dosage: UNKNOWN DOSING DETAILS
     Route: 065
     Dates: start: 20091215

REACTIONS (6)
  - AMNESIA [None]
  - DIZZINESS [None]
  - HEAD INJURY [None]
  - LOSS OF CONSCIOUSNESS [None]
  - PAIN [None]
  - ROAD TRAFFIC ACCIDENT [None]
